FAERS Safety Report 19578616 (Version 1)
Quarter: 2021Q3

REPORT INFORMATION
  Report Type: Spontaneous
  Country: ES (occurrence: ES)
  Receive Date: 20210720
  Receipt Date: 20210720
  Transmission Date: 20211014
  Serious: Yes (Other)
  Sender: FDA-Public Use
  Company Number: ES-CELLTRION INC.-2021ES009394

PATIENT

DRUGS (1)
  1. RITUXIMAB (UNKNOWN) [Suspect]
     Active Substance: RITUXIMAB
     Indication: NERVOUS SYSTEM DISORDER
     Dosage: UNK
     Route: 065

REACTIONS (3)
  - Breast cancer [Unknown]
  - Off label use [Unknown]
  - Product use in unapproved indication [Unknown]
